FAERS Safety Report 8267748-2 (Version None)
Quarter: 2012Q2

REPORT INFORMATION
  Report Type: 
  Country: None (occurrence: None)
  Receive Date: 20120409
  Receipt Date: 20120326
  Transmission Date: 20120825
  Serious: No
  Sender: FDA-Public Use
  Company Number: US-BAYER-2012-029596

PATIENT
  Age: 26 Year
  Sex: Female

DRUGS (1)
  1. SAFYRAL [Suspect]
     Indication: ORAL CONTRACEPTION
     Dosage: UNK
     Dates: start: 20120319

REACTIONS (2)
  - BREAST TENDERNESS [None]
  - URTICARIA [None]
